FAERS Safety Report 5330699-7 (Version None)
Quarter: 2007Q2

REPORT INFORMATION
  Report Type: 
  Country: None (occurrence: None)
  Receive Date: 20070522
  Receipt Date: 20070514
  Transmission Date: 20071010
  Serious: Yes (Other)
  Sender: FDA-Public Use
  Company Number: PHEH2007US04130

PATIENT
  Age: 45 Year
  Sex: Female
  Weight: 63.492 kg

DRUGS (2)
  1. ESTROGEN NOS [Concomitant]
     Route: 048
  2. VIVELLE-DOT [Suspect]
     Indication: HORMONE REPLACEMENT THERAPY
     Dosage: 0.037 MG, QW2
     Route: 062
     Dates: start: 20051101, end: 20070301

REACTIONS (5)
  - ABDOMINOPLASTY [None]
  - APPLICATION SITE ERYTHEMA [None]
  - APPLICATION SITE EXCORIATION [None]
  - APPLICATION SITE VESICLES [None]
  - WOUND [None]
